FAERS Safety Report 15777100 (Version 2)
Quarter: 2019Q1

REPORT INFORMATION
  Report Type: Spontaneous
  Country: PL (occurrence: PL)
  Receive Date: 20181231
  Receipt Date: 20190117
  Transmission Date: 20190417
  Serious: Yes (Other)
  Sender: FDA-Public Use
  Company Number: PL-PFIZER INC-2018532973

PATIENT
  Sex: Female

DRUGS (6)
  1. ADVAGRAF [Interacting]
     Active Substance: TACROLIMUS
     Indication: IMMUNOSUPPRESSION
     Dosage: 25 MG, TWICE DAILY
     Route: 065
     Dates: start: 20171029
  2. FLUCONAZOLE. [Suspect]
     Active Substance: FLUCONAZOLE
     Indication: IMMUNOSUPPRESSION
     Dosage: 100 MG, UNK
     Route: 065
  3. PROGRAF [Interacting]
     Active Substance: TACROLIMUS\TACROLIMUS ANHYDROUS
     Indication: IMMUNOSUPPRESSION
     Dosage: UNK
     Route: 065
     Dates: start: 20171005
  4. ENCORTON [PREDNISONE] [Concomitant]
     Dosage: FROM 20 MG TO 5MG, UNKNOWN FREQ
  5. ADVAGRAF [Interacting]
     Active Substance: TACROLIMUS
     Dosage: 6 MG, TWICE DAILY
     Route: 065
     Dates: start: 20171029
  6. MYFORTIC [Concomitant]
     Active Substance: MYCOPHENOLATE SODIUM
     Dosage: 4 X 360 MG, UNKNOWN FREQ

REACTIONS (5)
  - Delayed graft function [Unknown]
  - Intentional product misuse [Unknown]
  - Malabsorption [Recovered/Resolved]
  - Product use in unapproved indication [Unknown]
  - Drug interaction [Unknown]

NARRATIVE: CASE EVENT DATE: 20171029
